FAERS Safety Report 5003311-4 (Version None)
Quarter: 2006Q2

REPORT INFORMATION
  Report Type: 
  Country: None (occurrence: None)
  Receive Date: 20060511
  Receipt Date: 20060502
  Transmission Date: 20061013
  Serious: Yes (Life-Threatening)
  Sender: FDA-Public Use
  Company Number: 200610394BFR

PATIENT
  Age: 68 Year
  Sex: Male

DRUGS (4)
  1. CIPROFLOXACIN HCL [Suspect]
     Indication: BRONCHOPNEUMONIA
     Dosage: 400 MG, QD, INTRAVENOUS
     Route: 042
  2. AUGMENTIN '125' [Suspect]
     Indication: BRONCHOPNEUMONIA
     Dosage: 1 G, ONCE, ORAL
     Route: 048
     Dates: start: 20060214
  3. OFLOXACIN [Suspect]
     Indication: BRONCHOPNEUMONIA
     Dosage: 200 MG, ONCE, ORAL
     Route: 048
     Dates: start: 20060214
  4. AMOXICILLIN TRIHYDRATE [Suspect]
     Indication: BRONCHOPNEUMONIA
     Dosage: 1 G, ONCE, INTRAVENOUS
     Route: 042
     Dates: start: 20060214, end: 20060215

REACTIONS (5)
  - BRONCHOPNEUMONIA [None]
  - CHRONIC OBSTRUCTIVE PULMONARY DISEASE [None]
  - CONDITION AGGRAVATED [None]
  - SEPSIS [None]
  - TOXIC EPIDERMAL NECROLYSIS [None]
